FAERS Safety Report 11839983 (Version 1)
Quarter: 2015Q4

REPORT INFORMATION
  Report Type: Spontaneous
  Country: US (occurrence: None)
  Receive Date: 20151215
  Receipt Date: 20151215
  Transmission Date: 20160305
  Serious: Yes (Hospitalization)
  Sender: FDA-Public Use
  Company Number: None

PATIENT
  Age: 65 Year
  Sex: Male
  Weight: 90.27 kg

DRUGS (18)
  1. ASPIRIN 25MG/DIPYRIDAMOLE 200MG [Concomitant]
  2. TIOTROPIUM [Concomitant]
     Active Substance: TIOTROPIUM
  3. ALBUTEROL. [Concomitant]
     Active Substance: ALBUTEROL
  4. ARTIFICIAL TEARS PVA 1.4/POVIDONE (PF) [Concomitant]
  5. QUETIAPINE FUMARATE. [Concomitant]
     Active Substance: QUETIAPINE FUMARATE
  6. OVOSTATIN [Concomitant]
  7. LISINOPRIL. [Concomitant]
     Active Substance: LISINOPRIL
  8. METOPROLOL TARTRATE. [Concomitant]
     Active Substance: METOPROLOL TARTRATE
  9. BUDESONIDE/FORMOTER [Concomitant]
  10. SERTRALINE HCL [Concomitant]
     Active Substance: SERTRALINE HYDROCHLORIDE
  11. OMEPRAZOLE. [Concomitant]
     Active Substance: OMEPRAZOLE
  12. CETIRIZINE HCL [Concomitant]
     Active Substance: CETIRIZINE HYDROCHLORIDE
  13. FLUTICASONE PROP [Concomitant]
  14. FIORICET [Concomitant]
     Active Substance: ACETAMINOPHEN\BUTALBITAL\CAFFEINE
  15. MIRTAZAPINE. [Concomitant]
     Active Substance: MIRTAZAPINE
  16. ASPIRIN 81MG [Concomitant]
     Active Substance: ASPIRIN
  17. SODIUM FLUORIDE 1.1% [Concomitant]
  18. ADCIRCA [Suspect]
     Active Substance: TADALAFIL
     Indication: PULMONARY HYPERTENSION
     Dosage: 2 PILLS  ONCE DAILY TAKEN BY MOUTH
     Route: 048

REACTIONS (10)
  - Chronic obstructive pulmonary disease [None]
  - Vision blurred [None]
  - Head injury [None]
  - Nausea [None]
  - Terminal insomnia [None]
  - Loss of consciousness [None]
  - Headache [None]
  - Injury [None]
  - Fall [None]
  - Hypoaesthesia [None]

NARRATIVE: CASE EVENT DATE: 20151207
